FAERS Safety Report 17464682 (Version 2)
Quarter: 2020Q1

REPORT INFORMATION
  Report Type: Spontaneous
  Country: PT (occurrence: PT)
  Receive Date: 20200226
  Receipt Date: 20200228
  Transmission Date: 20200409
  Serious: Yes (Other)
  Sender: FDA-Public Use
  Company Number: PT-BAUSCH-BL-2020-005432

PATIENT
  Age: 20 Year
  Sex: Male

DRUGS (3)
  1. SALMETEROL [Concomitant]
     Active Substance: SALMETEROL
     Indication: ASTHMA
     Route: 055
     Dates: start: 20200205, end: 20200205
  2. LOCOID [Suspect]
     Active Substance: HYDROCORTISONE BUTYRATE
     Indication: DERMATITIS ATOPIC
     Dosage: TOPICAL APPLICATION
     Route: 061
     Dates: start: 20200204, end: 20200204
  3. HIDROCORTISONA [Concomitant]
     Active Substance: HYDROCORTISONE
     Indication: ASTHMA
     Route: 055
     Dates: start: 20200205, end: 20200205

REACTIONS (2)
  - Drug hypersensitivity [Recovered/Resolved]
  - Application site urticaria [Recovered/Resolved]

NARRATIVE: CASE EVENT DATE: 20200204
